FAERS Safety Report 10035802 (Version 2)
Quarter: 2014Q2

REPORT INFORMATION
  Report Type: Report from Study
  Country: MX (occurrence: MX)
  Receive Date: 20140325
  Receipt Date: 20140424
  Transmission Date: 20141212
  Serious: Yes (Hospitalization)
  Sender: FDA-Public Use
  Company Number: MX-SA-2014SA033083

PATIENT
  Age: 67 Year
  Sex: Female

DRUGS (11)
  1. TAXOTERE [Suspect]
     Indication: NON-SMALL CELL LUNG CANCER
     Route: 042
     Dates: start: 20131220, end: 20140206
  2. DEXAMETHASONE [Concomitant]
     Dates: start: 20130115
  3. DIPHENHYDRAMINE [Concomitant]
     Dates: start: 20131220
  4. ONDANSETRON [Concomitant]
     Dates: start: 20131220
  5. RANITIDINE [Concomitant]
     Dates: start: 20131220
  6. OMEPRAZOLE [Concomitant]
  7. FLUCONAZOLE [Concomitant]
  8. BUPRENORPHINE [Concomitant]
  9. METOCLOPRAMIDE [Concomitant]
     Dates: start: 20131227
  10. PARACETAMOL [Concomitant]
     Dates: start: 20131216, end: 20140210
  11. PREDNISONE [Concomitant]
     Dates: start: 20140206, end: 20140210

REACTIONS (3)
  - Anaemia [Recovered/Resolved]
  - Hypokalaemia [Recovered/Resolved]
  - Dehydration [Recovered/Resolved]
